FAERS Safety Report 20433618 (Version 1)
Quarter: 2022Q1

REPORT INFORMATION
  Report Type: Spontaneous
  Country: US (occurrence: US)
  Receive Date: 20220205
  Receipt Date: 20220205
  Transmission Date: 20220424
  Serious: Yes (Other)
  Sender: FDA-Public Use
  Company Number: US-JNJFOC-20220148349

PATIENT
  Sex: Male

DRUGS (1)
  1. ZYTIGA [Suspect]
     Active Substance: ABIRATERONE ACETATE
     Indication: Prostate cancer stage IV
     Route: 048
     Dates: start: 20211001, end: 20220122

REACTIONS (17)
  - Neuropathy peripheral [Unknown]
  - Immobile [Unknown]
  - Multiple allergies [Unknown]
  - Joint swelling [Unknown]
  - Muscle atrophy [Unknown]
  - Inflammation [Unknown]
  - Eczema [Unknown]
  - Hypoacusis [Unknown]
  - Generalised oedema [Unknown]
  - Confusional state [Unknown]
  - Pain [Unknown]
  - Insomnia [Unknown]
  - Headache [Unknown]
  - Muscular weakness [Unknown]
  - Nervous system disorder [Unknown]
  - Dysphagia [Unknown]
  - Pain in extremity [Unknown]
